FAERS Safety Report 4721558-9 (Version None)
Quarter: 2005Q3

REPORT INFORMATION
  Report Type: 
  Country: None (occurrence: None)
  Receive Date: 20050721
  Receipt Date: 20041123
  Transmission Date: 20060218
  Serious: No
  Sender: FDA-Public Use
  Company Number: US-BRISTOL-MYERS SQUIBB COMPANY-12773925

PATIENT
  Age: 74 Year
  Sex: Male
  Weight: 75 kg

DRUGS (3)
  1. COUMADIN [Suspect]
     Indication: CARDIAC PACEMAKER INSERTION
     Route: 048
  2. ZANTAC [Concomitant]
  3. FOLIC ACID [Concomitant]

REACTIONS (1)
  - SCROTAL ERYTHEMA [None]
